FAERS Safety Report 8660588 (Version 2)
Quarter: 2013Q4

REPORT INFORMATION
  Report Type: Spontaneous
  Country: TN (occurrence: TN)
  Receive Date: 20120711
  Receipt Date: 20131031
  Transmission Date: 20140711
  Serious: Yes (Hospitalization, Congenital Anomaly)
  Sender: FDA-Public Use
  Company Number: TN-009507513-1207TUN000359

PATIENT
  Sex: Female
  Weight: 2.5 kg

DRUGS (1)
  1. CELESTENE CHRONODOSE [Suspect]
     Indication: MATERNAL THERAPY TO ENHANCE FOETAL LUNG MATURITY
     Dosage: 12 MG, QD
     Route: 064

REACTIONS (2)
  - Hypertrophic cardiomyopathy [Recovered/Resolved]
  - Foetal exposure during pregnancy [Recovered/Resolved]
